FAERS Safety Report 8826877 (Version 1)
Quarter: 2012Q4

REPORT INFORMATION
  Report Type: 
  Country: JP (occurrence: JP)
  Receive Date: 20121005
  Receipt Date: 20121005
  Transmission Date: 20130627
  Serious: Yes (Hospitalization)
  Sender: FDA-Public Use
  Company Number: JP-SHIRE-ALL1-2012-04707

PATIENT
  Age: 81 Year
  Sex: Female

DRUGS (2)
  1. FOSRENOL [Suspect]
     Indication: HYPERPHOSPHATAEMIA
     Dosage: 750 mg, Other (immediately after meals)
     Route: 048
     Dates: start: 20100921, end: 20120822
  2. FOSRENOL [Suspect]
     Dosage: 750 mg, Other (immediately after meas)
     Route: 048
     Dates: start: 20120913, end: 20120922

REACTIONS (1)
  - Diverticulum intestinal haemorrhagic [Recovering/Resolving]
